FAERS Safety Report 11885330 (Version 3)
Quarter: 2017Q4

REPORT INFORMATION
  Report Type: Spontaneous
  Country: BR (occurrence: BR)
  Receive Date: 20160104
  Receipt Date: 20171114
  Transmission Date: 20180320
  Serious: Yes (Other)
  Sender: FDA-Public Use
  Company Number: BR-JNJFOC-20151226066

PATIENT
  Age: 35 Year
  Sex: Female
  Weight: 58 kg

DRUGS (2)
  1. SIMPONI [Suspect]
     Active Substance: GOLIMUMAB
     Indication: RHEUMATOID ARTHRITIS
     Route: 058
  2. SIMPONI [Suspect]
     Active Substance: GOLIMUMAB
     Indication: RHEUMATOID ARTHRITIS
     Route: 058
     Dates: start: 20151204

REACTIONS (7)
  - Decreased immune responsiveness [Unknown]
  - Uterine infection [Unknown]
  - Rheumatoid arthritis [Not Recovered/Not Resolved]
  - Cholecystitis infective [Unknown]
  - Pharyngitis [Recovering/Resolving]
  - Treatment noncompliance [Unknown]
  - Blood disorder [Unknown]

NARRATIVE: CASE EVENT DATE: 201512
